FAERS Safety Report 10177722 (Version 1)
Quarter: 2014Q2

REPORT INFORMATION
  Report Type: Spontaneous
  Country: US (occurrence: US)
  Receive Date: 20140516
  Receipt Date: 20140516
  Transmission Date: 20141212
  Serious: No
  Sender: FDA-Public Use
  Company Number: US-SANOFI-AVENTIS-2013SA042674

PATIENT
  Age: 71 Year
  Sex: Female

DRUGS (2)
  1. APIDRA [Suspect]
     Indication: TYPE 2 DIABETES MELLITUS
     Dosage: DOSE:2 UNIT(S)
     Route: 065
     Dates: start: 20130416
  2. ANTIHYPERTENSIVES [Concomitant]

REACTIONS (3)
  - Fatigue [Unknown]
  - Somnolence [Unknown]
  - Drug dose omission [Unknown]
